FAERS Safety Report 9156998 (Version 2)
Quarter: 2013Q2

REPORT INFORMATION
  Report Type: Spontaneous
  Country: US (occurrence: US)
  Receive Date: 20130312
  Receipt Date: 20130405
  Transmission Date: 20140414
  Serious: Yes (Other)
  Sender: FDA-Public Use
  Company Number: US-BAYER-2013-028893

PATIENT
  Age: 24 Year
  Sex: Female
  Weight: 59 kg

DRUGS (2)
  1. MIRENA [Suspect]
     Indication: CONTRACEPTION
     Dosage: 20 MCG/24HR, CONT
     Route: 015
     Dates: start: 20130228, end: 20130228
  2. MIRENA [Suspect]
     Indication: DYSMENORRHOEA

REACTIONS (3)
  - Menstrual disorder [Recovered/Resolved]
  - Abdominal pain lower [Recovered/Resolved]
  - Device difficult to use [None]
